FAERS Safety Report 13842291 (Version 1)
Quarter: 2017Q3

REPORT INFORMATION
  Report Type: Spontaneous
  Country: US (occurrence: US)
  Receive Date: 20170807
  Receipt Date: 20170807
  Transmission Date: 20171127
  Serious: No
  Sender: FDA-Public Use
  Company Number: US-BIOGEN-2017BI00437632

PATIENT
  Sex: Female

DRUGS (1)
  1. PLEGRIDY [Suspect]
     Active Substance: PEGINTERFERON BETA-1A
     Indication: MULTIPLE SCLEROSIS
     Route: 065
     Dates: start: 20150924, end: 20160605

REACTIONS (8)
  - Joint swelling [Unknown]
  - Discomfort [Unknown]
  - Peripheral swelling [Unknown]
  - Fatigue [Unknown]
  - Back pain [Unknown]
  - Pain [Unknown]
  - Decreased appetite [Unknown]
  - Pain in extremity [Unknown]
